FAERS Safety Report 8163593-7 (Version None)
Quarter: 2012Q1

REPORT INFORMATION
  Report Type: 
  Country: None (occurrence: None)
  Receive Date: 20120224
  Receipt Date: 20120215
  Transmission Date: 20120608
  Serious: Yes (Other)
  Sender: FDA-Public Use
  Company Number: GB-JNJFOC-20111202784

PATIENT
  Sex: Male
  Weight: 94 kg

DRUGS (7)
  1. COZAAR [Concomitant]
  2. BENDROFLUAZIDE [Concomitant]
  3. XARELTO [Suspect]
     Indication: KNEE ARTHROPLASTY
     Route: 065
  4. ACETAMINOPHEN [Concomitant]
  5. VERAPAMIL [Concomitant]
  6. HEPARIN [Concomitant]
  7. SIMVASTATIN [Concomitant]

REACTIONS (1)
  - HALLUCINATION [None]
